FAERS Safety Report 6705016-8 (Version None)
Quarter: 2010Q2

REPORT INFORMATION
  Report Type: 
  Country: None (occurrence: None)
  Receive Date: 20100430
  Receipt Date: 20100426
  Transmission Date: 20101027
  Serious: Yes (Death)
  Sender: FDA-Public Use
  Company Number: A0857340A

PATIENT
  Sex: Male

DRUGS (4)
  1. SERETIDE [Suspect]
     Indication: DRUG USE FOR UNKNOWN INDICATION
     Route: 055
  2. CLINDAMYCIN [Concomitant]
  3. AMOXICILLIN [Concomitant]
  4. AMLODIPINE [Concomitant]

REACTIONS (2)
  - ENCEPHALOPATHY [None]
  - RENAL FAILURE ACUTE [None]
